FAERS Safety Report 10903266 (Version 1)
Quarter: 2015Q1

REPORT INFORMATION
  Report Type: Report from Study
  Country: CN (occurrence: CN)
  Receive Date: 20150311
  Receipt Date: 20150311
  Transmission Date: 20150721
  Serious: Yes (Hospitalization)
  Sender: FDA-Public Use
  Company Number: CN-ROCHE-1525297

PATIENT
  Sex: Male
  Weight: 75 kg

DRUGS (1)
  1. AVASTIN [Suspect]
     Active Substance: BEVACIZUMAB
     Indication: COLON CANCER
     Route: 042
     Dates: start: 20141118

REACTIONS (3)
  - Intestinal obstruction [Unknown]
  - Asthenia [Unknown]
  - Weight decreased [Unknown]
